FAERS Safety Report 4576159-2 (Version None)
Quarter: 2005Q1

REPORT INFORMATION
  Report Type: 
  Country: None (occurrence: None)
  Receive Date: 20050201
  Receipt Date: 20050201
  Transmission Date: 20050727
  Serious: Yes (Hospitalization)
  Sender: FDA-Public Use
  Company Number: None

PATIENT
  Age: 59 Year
  Sex: Female

DRUGS (4)
  1. PAMIDRONATE DISODIUM [Suspect]
     Indication: CROHN'S DISEASE
     Dosage: 90 MG
     Dates: start: 20041021
  2. PAMIDRONATE DISODIUM [Suspect]
     Indication: OSTEOMYELITIS
     Dosage: 90 MG
     Dates: start: 20041021
  3. METHADONE [Concomitant]
  4. METHYLPRED [Concomitant]

REACTIONS (2)
  - CONFUSIONAL STATE [None]
  - HYPERCALCAEMIA [None]
